FAERS Safety Report 9234122 (Version 4)
Quarter: 2013Q3

REPORT INFORMATION
  Report Type: Report from Study
  Country: JP (occurrence: JP)
  Receive Date: 20130416
  Receipt Date: 20130820
  Transmission Date: 20140515
  Serious: Yes (Other)
  Sender: FDA-Public Use
  Company Number: JP-ELI_LILLY_AND_COMPANY-JP201304002411

PATIENT
  Age: 83 Year
  Sex: Female

DRUGS (4)
  1. TERIPARATIDE [Suspect]
     Dosage: UNK
     Route: 058
     Dates: start: 20130122
  2. TERIPARATIDE [Suspect]
     Route: 058
  3. TERIPARATIDE [Suspect]
     Dosage: UNK
     Route: 058
  4. CALCIUM LACTATE [Concomitant]
     Route: 048

REACTIONS (5)
  - Fracture [Unknown]
  - Face oedema [Not Recovered/Not Resolved]
  - Bone density decreased [Unknown]
  - Blood calcium increased [Unknown]
  - Drug ineffective [Unknown]
